FAERS Safety Report 24269297 (Version 1)
Quarter: 2024Q3

REPORT INFORMATION
  Report Type: Spontaneous
  Country: CO (occurrence: CO)
  Receive Date: 20240830
  Receipt Date: 20240830
  Transmission Date: 20241016
  Serious: Yes (Hospitalization, Other)
  Sender: BIOCRYST PHARMACEUTICALS
  Company Number: CO-BIOCRYST PHARMACEUTICALS, INC.-2024BCR00885

PATIENT
  Age: 12 Year
  Sex: Male
  Weight: 44 kg

DRUGS (1)
  1. ORLADEYO [Suspect]
     Active Substance: BEROTRALSTAT HYDROCHLORIDE
     Indication: Hereditary angioedema
     Dosage: 1 CAPSULES, EVERY 24 HOURS
     Route: 048
     Dates: start: 20240620

REACTIONS (2)
  - Respiratory distress [Recovering/Resolving]
  - Bone pain [Recovering/Resolving]

NARRATIVE: CASE EVENT DATE: 20240716
